FAERS Safety Report 6968706-8 (Version None)
Quarter: 2010Q3

REPORT INFORMATION
  Report Type: 
  Country: None (occurrence: None)
  Receive Date: 20100907
  Receipt Date: 20100901
  Transmission Date: 20110219
  Serious: Yes (Hospitalization)
  Sender: FDA-Public Use
  Company Number: AR-GENZYME-FABR-1001532

PATIENT

DRUGS (2)
  1. FABRAZYME [Suspect]
     Indication: FABRY'S DISEASE
     Dosage: 1 MG/KG, Q2W
     Route: 042
     Dates: start: 20091104, end: 20100122
  2. REPLAGAL [Suspect]
     Indication: FABRY'S DISEASE
     Dosage: 0.2 MG/KG, Q2W
     Route: 042
     Dates: start: 20100623

REACTIONS (1)
  - CORONARY ARTERY DISEASE [None]
